FAERS Safety Report 4965847-1 (Version None)
Quarter: 2006Q2

REPORT INFORMATION
  Report Type: 
  Country: None (occurrence: None)
  Receive Date: 20060406
  Receipt Date: 20060406
  Transmission Date: 20061013
  Serious: Yes (Hospitalization)
  Sender: FDA-Public Use
  Company Number: None

PATIENT
  Sex: Female
  Weight: 111.5849 kg

DRUGS (1)
  1. ZITHROMAX [Suspect]
     Indication: INFECTION
     Dates: start: 20060320, end: 20060325

REACTIONS (1)
  - CONVULSION [None]
